FAERS Safety Report 17414632 (Version 1)
Quarter: 2020Q1

REPORT INFORMATION
  Report Type: Spontaneous
  Country: GB (occurrence: GB)
  Receive Date: 20200213
  Receipt Date: 20200213
  Transmission Date: 20200409
  Serious: Yes (Life-Threatening)
  Sender: FDA-Public Use
  Company Number: GB-ROCHE-2544214

PATIENT
  Age: 41 Year
  Sex: Female
  Weight: 46.71 kg

DRUGS (1)
  1. TAMIFLU [Suspect]
     Active Substance: OSELTAMIVIR PHOSPHATE
     Indication: PRODUCT USED FOR UNKNOWN INDICATION
     Route: 048
     Dates: start: 20191108, end: 20191108

REACTIONS (6)
  - Anxiety [Recovering/Resolving]
  - Hallucination, visual [Recovering/Resolving]
  - Sensory overload [Recovering/Resolving]
  - Dyspnoea [Recovering/Resolving]
  - Panic attack [Recovering/Resolving]
  - Fear [Recovering/Resolving]

NARRATIVE: CASE EVENT DATE: 20191208
